FAERS Safety Report 8611908-5 (Version None)
Quarter: 2012Q3

REPORT INFORMATION
  Report Type: 
  Country: None (occurrence: None)
  Receive Date: 20120822
  Receipt Date: 20120807
  Transmission Date: 20120928
  Serious: Yes (Death)
  Sender: FDA-Public Use
  Company Number: US-ROCHE-602437

PATIENT
  Sex: Female

DRUGS (24)
  1. PREDNISONE TAB [Concomitant]
     Indication: ARTHRALGIA
     Dosage: 60 MG, UNK
  2. PREDNISONE TAB [Concomitant]
     Dosage: 10-20 MG, UNK
  3. PANGLOBULIN [Concomitant]
     Indication: IDIOPATHIC THROMBOCYTOPENIC PURPURA
     Route: 042
  4. CALCIUM CARBONATE [Concomitant]
     Indication: PRODUCT USED FOR UNKNOWN INDICATION
  5. RITUXAN [Suspect]
     Indication: IDIOPATHIC THROMBOCYTOPENIC PURPURA
     Dosage: 375/M2, UNK
     Route: 042
  6. ERGOCALCIFEROL [Concomitant]
     Indication: PRODUCT USED FOR UNKNOWN INDICATION
  7. ZOLEDRONIC ACID [Concomitant]
     Indication: PRODUCT USED FOR UNKNOWN INDICATION
  8. IRON POLYSACCHARIDE [Concomitant]
     Indication: PRODUCT USED FOR UNKNOWN INDICATION
  9. CONJUGATED ESTROGENS [Concomitant]
     Indication: PRODUCT USED FOR UNKNOWN INDICATION
  10. RITUXAN [Suspect]
     Indication: LUPUS-LIKE SYNDROME
     Route: 065
  11. IMURAN [Concomitant]
     Indication: PRODUCT USED FOR UNKNOWN INDICATION
     Dosage: 200 UNK, BID
  12. OMEPRAZOLE [Concomitant]
     Indication: PRODUCT USED FOR UNKNOWN INDICATION
  13. SUMATRIPTAN [Concomitant]
     Indication: PRODUCT USED FOR UNKNOWN INDICATION
  14. MIRTAZAPINE [Concomitant]
     Indication: DEPRESSION
  15. ASCORBIC ACID [Concomitant]
     Indication: PRODUCT USED FOR UNKNOWN INDICATION
  16. SULFAMETHOXAZOLE [Concomitant]
     Indication: PRODUCT USED FOR UNKNOWN INDICATION
  17. RITUXAN [Suspect]
     Route: 065
  18. PREDNISONE TAB [Concomitant]
     Dosage: 10 MG, QOD
  19. ROMIPLOSTIM [Concomitant]
     Indication: IDIOPATHIC THROMBOCYTOPENIC PURPURA
  20. ATENOLOL [Concomitant]
     Indication: PRODUCT USED FOR UNKNOWN INDICATION
  21. PREDNISONE TAB [Concomitant]
     Dosage: 5-15 MG, UNK
  22. DANAZOL [Concomitant]
     Indication: IDIOPATHIC THROMBOCYTOPENIC PURPURA
  23. ACETAMINOPHEN [Concomitant]
     Indication: PRODUCT USED FOR UNKNOWN INDICATION
  24. ALPRAZOLAM [Concomitant]
     Indication: INSOMNIA

REACTIONS (1)
  - PROGRESSIVE MULTIFOCAL LEUKOENCEPHALOPATHY [None]
